FAERS Safety Report 8738316 (Version 2)
Quarter: 2012Q4

REPORT INFORMATION
  Report Type: 
  Country: CA (occurrence: CA)
  Receive Date: 20120823
  Receipt Date: 20121011
  Transmission Date: 20130627
  Serious: Yes (Other)
  Sender: FDA-Public Use
  Company Number: CA-BAYER-2012-086018

PATIENT
  Age: 50 Year
  Sex: Male
  Weight: 86.17 kg

DRUGS (1)
  1. LEVITRA [Suspect]
     Indication: ERECTILE DYSFUNCTION
     Dosage: 20 mg, QD
     Route: 065
     Dates: start: 20110715

REACTIONS (3)
  - Headache [Recovered/Resolved]
  - Influenza like illness [Recovered/Resolved]
  - Visual impairment [Recovered/Resolved]
